FAERS Safety Report 9602427 (Version 3)
Quarter: 2014Q1

REPORT INFORMATION
  Report Type: Report from Study
  Country: US (occurrence: US)
  Receive Date: 20131007
  Receipt Date: 20140130
  Transmission Date: 20141002
  Serious: Yes (Death, Hospitalization, Other)
  Sender: FDA-Public Use
  Company Number: US-ROCHE-1281838

PATIENT
  Age: 57 Year
  Sex: Female
  Weight: 119.4 kg

DRUGS (17)
  1. HERCEPTIN [Suspect]
     Indication: BREAST CANCER
     Route: 065
  2. KADCYLA [Suspect]
     Indication: BREAST CANCER
     Route: 042
     Dates: start: 20130419, end: 20130924
  3. KADCYLA [Suspect]
     Indication: HER-2 POSITIVE BREAST CANCER
  4. TYKERB [Concomitant]
     Indication: BREAST CANCER
     Route: 048
  5. TYKERB [Concomitant]
     Route: 048
     Dates: start: 20111116, end: 20130924
  6. DECADRON [Concomitant]
     Route: 065
  7. PERCOCET [Concomitant]
  8. DYAZIDE [Concomitant]
     Route: 065
  9. ADVAIR DISKUS [Concomitant]
     Dosage: PRN
     Route: 065
  10. VENTOLIN [Concomitant]
     Indication: CHRONIC OBSTRUCTIVE PULMONARY DISEASE
     Dosage: PRN
     Route: 048
  11. FLOVENT [Concomitant]
     Dosage: PRN
     Route: 065
  12. LIPITOR [Concomitant]
     Indication: BLOOD CHOLESTEROL
     Dosage: PRN
     Route: 048
  13. COREG [Concomitant]
     Indication: CARDIAC FAILURE CONGESTIVE
     Route: 048
  14. GLIBENCLAMIDE [Concomitant]
     Indication: TYPE 2 DIABETES MELLITUS
     Dosage: 5/800
     Route: 048
  15. METFORMIN [Concomitant]
     Indication: TYPE 2 DIABETES MELLITUS
     Dosage: 5/800
     Route: 048
  16. DEXAMETHASONE [Concomitant]
     Indication: BRAIN OEDEMA
     Route: 065
  17. LORAZEPAM [Concomitant]
     Indication: ANXIETY

REACTIONS (11)
  - Death [Fatal]
  - Asthenia [Unknown]
  - Speech disorder [Unknown]
  - Headache [Unknown]
  - Central nervous system lesion [Unknown]
  - Memory impairment [Unknown]
  - Dizziness [Unknown]
  - Asthenia [Unknown]
  - Nausea [Recovered/Resolved]
  - Fatigue [Unknown]
  - Feeling abnormal [Recovered/Resolved]
